FAERS Safety Report 10250900 (Version 2)
Quarter: 2014Q3

REPORT INFORMATION
  Report Type: Report from Study
  Country: US (occurrence: US)
  Receive Date: 20140620
  Receipt Date: 20140730
  Transmission Date: 20150326
  Serious: Yes (Hospitalization)
  Sender: FDA-Public Use
  Company Number: US-BAYER-2014-088798

PATIENT
  Age: 67 Year
  Sex: Female

DRUGS (3)
  1. STIVARGA [Suspect]
     Active Substance: REGORAFENIB
     Indication: COLON CANCER
     Dosage: 3 TABLETS (120 MG)
     Route: 048
     Dates: start: 2014, end: 2014
  2. STIVARGA [Suspect]
     Active Substance: REGORAFENIB
     Indication: COLON CANCER
     Dosage: 2 TABLETS EVERY DAY
     Route: 048
     Dates: start: 2014
  3. STIVARGA [Suspect]
     Active Substance: REGORAFENIB
     Indication: COLON CANCER
     Dosage: 160 MG, QD
     Route: 048
     Dates: start: 20140514

REACTIONS (4)
  - Dizziness [None]
  - Dehydration [None]
  - Presyncope [None]
  - Diarrhoea [None]

NARRATIVE: CASE EVENT DATE: 2014
